FAERS Safety Report 8128856-X (Version None)
Quarter: 2012Q1

REPORT INFORMATION
  Report Type: 
  Country: None (occurrence: None)
  Receive Date: 20120210
  Receipt Date: 20110405
  Transmission Date: 20120608
  Serious: No
  Sender: FDA-Public Use
  Company Number: US-BRISTOL-MYERS SQUIBB COMPANY-15654759

PATIENT
  Sex: Female

DRUGS (2)
  1. METHOTREXATE [Concomitant]
  2. ORENCIA [Suspect]
     Dates: start: 20100901

REACTIONS (3)
  - MIGRAINE [None]
  - SINUS HEADACHE [None]
  - RHINORRHOEA [None]
